FAERS Safety Report 25001141 (Version 1)
Quarter: 2025Q1

REPORT INFORMATION
  Report Type: Spontaneous
  Country: BE (occurrence: BE)
  Receive Date: 20250222
  Receipt Date: 20250222
  Transmission Date: 20250408
  Serious: Yes (Hospitalization, Other)
  Sender: ALEXION PHARMACEUTICALS
  Company Number: None

PATIENT
  Age: 64 Year
  Weight: 60 kg

DRUGS (1)
  1. FASENRA [Suspect]
     Active Substance: BENRALIZUMAB
     Indication: Eosinophilia

REACTIONS (7)
  - Atrioventricular block [Recovered/Resolved with Sequelae]
  - Cardiac pacemaker insertion [Recovered/Resolved with Sequelae]
  - Heart rate irregular [Recovered/Resolved with Sequelae]
  - Tachycardia [Recovered/Resolved with Sequelae]
  - Photopsia [Not Recovered/Not Resolved]
  - Retinal tear [Recovered/Resolved with Sequelae]
  - Glaucoma [Recovered/Resolved with Sequelae]
